FAERS Safety Report 7621768-7 (Version None)
Quarter: 2011Q3

REPORT INFORMATION
  Report Type: 
  Country: None (occurrence: None)
  Receive Date: 20110719
  Receipt Date: 20110706
  Transmission Date: 20111222
  Serious: Yes (Death)
  Sender: FDA-Public Use
  Company Number: DK-MYLANLABS-2011S1014219

PATIENT
  Age: 61 Year
  Sex: Male
  Weight: 140 kg

DRUGS (2)
  1. GLIMEPIRIDE [Concomitant]
     Indication: TYPE 2 DIABETES MELLITUS
     Route: 065
  2. METFORMIN HCL [Suspect]
     Indication: TYPE 2 DIABETES MELLITUS
     Route: 065

REACTIONS (2)
  - MULTI-ORGAN FAILURE [None]
  - LACTIC ACIDOSIS [None]
